FAERS Safety Report 13042736 (Version 2)
Quarter: 2017Q3

REPORT INFORMATION
  Report Type: Spontaneous
  Country: US (occurrence: US)
  Receive Date: 20161219
  Receipt Date: 20170718
  Transmission Date: 20171127
  Serious: No
  Sender: FDA-Public Use
  Company Number: US-SEPTODONT-201603623

PATIENT
  Age: 4 Decade
  Sex: Female
  Weight: 63.5 kg

DRUGS (2)
  1. ORAVERSE [Suspect]
     Active Substance: PHENTOLAMINE MESYLATE
     Indication: ANAESTHESIA REVERSAL
     Route: 004
     Dates: start: 20160914, end: 20160914
  2. CARBOCAINE [Concomitant]
     Active Substance: MEPIVACAINE HYDROCHLORIDE
     Indication: LOCAL ANAESTHESIA
     Dosage: ADMINISTERED VIA MANDIBULAR/INFERIOR ALVEOLAR BLOCK
     Route: 004
     Dates: start: 20160914, end: 20160914

REACTIONS (6)
  - Heart rate increased [Unknown]
  - Discomfort [Recovered/Resolved]
  - Malaise [Unknown]
  - Hypoaesthesia [Not Recovered/Not Resolved]
  - Palpitations [Recovered/Resolved]
  - Anxiety [Unknown]

NARRATIVE: CASE EVENT DATE: 20160914
